FAERS Safety Report 9848081 (Version 2)
Quarter: 2014Q1

REPORT INFORMATION
  Report Type: Report from Study
  Country: FR (occurrence: FR)
  Receive Date: 20140128
  Receipt Date: 20140217
  Transmission Date: 20141002
  Serious: Yes (Hospitalization)
  Sender: FDA-Public Use
  Company Number: FR-ROCHE-1338166

PATIENT
  Sex: Male

DRUGS (2)
  1. MYCOPHENOLATE MOFETIL [Suspect]
     Indication: TRANSPLANT REJECTION
     Dosage: ONGOING TREATMENT
     Route: 048
     Dates: start: 20121026
  2. CERTICAN [Suspect]
     Indication: TRANSPLANT REJECTION
     Dosage: ONGOING TREATMENT
     Route: 048
     Dates: start: 20121211

REACTIONS (2)
  - Postrenal failure [Recovered/Resolved]
  - Transplant rejection [Recovered/Resolved]
